FAERS Safety Report 25628460 (Version 1)
Quarter: 2025Q3

REPORT INFORMATION
  Report Type: Spontaneous
  Country: US (occurrence: US)
  Receive Date: 20250731
  Receipt Date: 20250731
  Transmission Date: 20251021
  Serious: No
  Sender: Alora Pharma
  Company Number: US-VERTICAL PHARMACEUTICALS-2024ALO00415

PATIENT
  Sex: Female

DRUGS (2)
  1. ESTRADIOL [Suspect]
     Active Substance: ESTRADIOL
     Indication: Migraine
  2. ESTRADIOL [Suspect]
     Active Substance: ESTRADIOL
     Indication: Vertigo

REACTIONS (7)
  - Blood test abnormal [Unknown]
  - Product use in unapproved indication [Unknown]
  - Product packaging issue [Unknown]
  - Product packaging quantity issue [Unknown]
  - Product quality issue [Unknown]
  - Product dose omission issue [Unknown]
  - Product measured potency issue [Unknown]
